FAERS Safety Report 18065367 (Version 3)
Quarter: 2020Q4

REPORT INFORMATION
  Report Type: Report from Study
  Country: None (occurrence: US)
  Receive Date: 20200724
  Receipt Date: 20201106
  Transmission Date: 20210113
  Serious: Yes (Hospitalization, Other)
  Sender: FDA-Public Use
  Company Number: US-BIOVITRUM-2020US3851

PATIENT
  Age: 46 Year
  Sex: Female

DRUGS (3)
  1. KINERET [Suspect]
     Active Substance: ANAKINRA
     Route: 058
     Dates: start: 20190409
  2. KINERET [Suspect]
     Active Substance: ANAKINRA
     Route: 058
     Dates: start: 20190408
  3. KINERET [Suspect]
     Active Substance: ANAKINRA
     Indication: RHEUMATOID ARTHRITIS
     Route: 058

REACTIONS (6)
  - Dry throat [Unknown]
  - Asthenia [Unknown]
  - Urinary retention [Unknown]
  - Fatigue [Unknown]
  - Vision blurred [Unknown]
  - Off label use [Unknown]

NARRATIVE: CASE EVENT DATE: 20190409
